FAERS Safety Report 8819848 (Version 1)
Quarter: 2012Q4

REPORT INFORMATION
  Report Type: 
  Country: US (occurrence: US)
  Receive Date: 20121001
  Receipt Date: 20121001
  Transmission Date: 20130627
  Serious: Yes (Other)
  Sender: FDA-Public Use
  Company Number: US-ROCHE-1125033

PATIENT
  Sex: Female

DRUGS (2)
  1. HERCEPTIN [Suspect]
     Indication: OVARIAN CANCER
     Route: 065
  2. TAXOL [Concomitant]

REACTIONS (3)
  - Disease progression [Unknown]
  - Liver disorder [Unknown]
  - Metastases to spleen [Unknown]
